FAERS Safety Report 6342182-0 (Version None)
Quarter: 2009Q3

REPORT INFORMATION
  Report Type: 
  Country: None (occurrence: None)
  Receive Date: 20090903
  Receipt Date: 20090903
  Transmission Date: 20100115
  Serious: Yes (Disabling)
  Sender: FDA-Public Use
  Company Number: None

PATIENT
  Sex: Female
  Weight: 66.6788 kg

DRUGS (1)
  1. ABILIFY [Suspect]
     Indication: DEMENTIA WITH LEWY BODIES
     Dosage: 7.5 MG 1 X DAY ORAL
     Route: 048
     Dates: start: 20060101, end: 20090101

REACTIONS (1)
  - TARDIVE DYSKINESIA [None]
